FAERS Safety Report 24110989 (Version 2)
Quarter: 2024Q3

REPORT INFORMATION
  Report Type: Spontaneous
  Country: US (occurrence: US)
  Receive Date: 20240718
  Receipt Date: 20240829
  Transmission Date: 20241017
  Serious: No
  Sender: APRECIA PHARMACEUTICALS
  Company Number: US-Aprecia Pharmaceuticals-APRE20241035

PATIENT
  Age: 13 Year
  Sex: Female

DRUGS (3)
  1. SPRITAM [Suspect]
     Active Substance: LEVETIRACETAM
     Indication: Myoclonic epilepsy
     Dosage: 4000 MG DAILY
     Route: 048
     Dates: start: 202403, end: 202407
  2. SPRITAM [Suspect]
     Active Substance: LEVETIRACETAM
     Dosage: UNKNOWN
     Route: 048
     Dates: start: 202211
  3. VIMPAT [Concomitant]
     Active Substance: LACOSAMIDE
     Indication: Product used for unknown indication
     Dosage: UNKNOWN
     Route: 065

REACTIONS (3)
  - Off label use [Recovered/Resolved]
  - Dizziness [Recovering/Resolving]
  - Balance disorder [Recovering/Resolving]

NARRATIVE: CASE EVENT DATE: 20240301
